FAERS Safety Report 10143004 (Version 1)
Quarter: 2014Q2

REPORT INFORMATION
  Report Type: Spontaneous
  Country: US (occurrence: None)
  Receive Date: 20140428
  Receipt Date: 20140428
  Transmission Date: 20141212
  Serious: Yes (Other)
  Sender: FDA-Public Use
  Company Number: PR-AE14-000433

PATIENT
  Age: 72 Year
  Sex: Female

DRUGS (14)
  1. FLUTICASONE PROPIONATE + SALMETEROL XINAFOATE [Suspect]
     Indication: ASTHMA
     Dates: start: 20130406
  2. MORPHINE [Suspect]
  3. ATENOLOL [Suspect]
  4. CIMETIDINE (TAGAMET) [Suspect]
  5. CHAMOMILE TEA [Suspect]
  6. PHENOXYMETHYLPENICILLIN POTASSIUM [Suspect]
  7. CAFFEINE [Suspect]
  8. INFLUENZA VACCINE [Concomitant]
  9. THYROXINE SODIUM (SYNTHROID) [Concomitant]
  10. GEMIFIBROZIL (LOPID) [Concomitant]
  11. METFORMIN HYDROCHLORIDE (GLUCOPHAGE XR) [Concomitant]
  12. LISINOPRIL [Concomitant]
  13. POTASSIUM CHLORIDE (KLOR CON M10) [Concomitant]
  14. VITAMIN SUPLEMENTS [Concomitant]

REACTIONS (11)
  - Cataract [None]
  - Atrial fibrillation [None]
  - Ventricular extrasystoles [None]
  - Nausea [None]
  - Retching [None]
  - Asthenia [None]
  - Dizziness [None]
  - Ill-defined disorder [None]
  - Swelling face [None]
  - Local swelling [None]
  - Palpitations [None]
